FAERS Safety Report 4611057-7 (Version None)
Quarter: 2005Q1

REPORT INFORMATION
  Report Type: 
  Country: None (occurrence: None)
  Receive Date: 20050315
  Receipt Date: 20050315
  Transmission Date: 20050727
  Serious: Yes (Other)
  Sender: FDA-Public Use
  Company Number: None

PATIENT
  Sex: Male

DRUGS (2)
  1. DURAGESIC-100 [Suspect]
     Indication: PAIN
     Dosage: 50 MCG - CHANGE PATCH Q 3 DAYS
     Route: 062
  2. DURAGESIC-100 [Suspect]
     Indication: PARAPLEGIA
     Dosage: 50 MCG - CHANGE PATCH Q 3 DAYS
     Route: 062

REACTIONS (2)
  - PHARMACEUTICAL PRODUCT COMPLAINT [None]
  - VOMITING [None]
